FAERS Safety Report 9788603 (Version 3)
Quarter: 2014Q1

REPORT INFORMATION
  Report Type: Spontaneous
  Country: JP (occurrence: JP)
  Receive Date: 20131230
  Receipt Date: 20140220
  Transmission Date: 20141002
  Serious: Yes (Hospitalization)
  Sender: FDA-Public Use
  Company Number: JP-ASTRAZENECA-2013SE93691

PATIENT
  Age: 26397 Day
  Sex: Male
  Weight: 59 kg

DRUGS (8)
  1. NEXIUM [Suspect]
     Indication: GASTRIC ULCER
     Route: 048
     Dates: start: 20131210, end: 20131218
  2. BAKTAR [Suspect]
     Indication: MYASTHENIA GRAVIS
     Route: 048
     Dates: start: 20131004, end: 20131218
  3. PREDNISOLONE [Concomitant]
     Indication: MYASTHENIA GRAVIS
     Route: 048
     Dates: start: 20131004
  4. MESTINON [Concomitant]
     Indication: MYASTHENIA GRAVIS
     Route: 048
     Dates: start: 20131004
  5. OLMETEC [Concomitant]
     Indication: HYPERTENSION
     Route: 048
     Dates: start: 20131004, end: 20131218
  6. TRAZENTA [Concomitant]
     Indication: DIABETES MELLITUS
     Route: 048
     Dates: start: 20131004, end: 20131218
  7. BAYASPIRIN [Concomitant]
     Indication: CEREBRAL INFARCTION
     Route: 048
     Dates: start: 20131004, end: 20131218
  8. METGLUCO [Concomitant]
     Indication: DIABETES MELLITUS
     Route: 048
     Dates: start: 20131004, end: 20131218

REACTIONS (2)
  - Granulocytopenia [Recovering/Resolving]
  - Inappropriate antidiuretic hormone secretion [Recovered/Resolved]
